FAERS Safety Report 11845383 (Version 2)
Quarter: 2015Q4

REPORT INFORMATION
  Report Type: Report from Study
  Country: US (occurrence: US)
  Receive Date: 20151217
  Receipt Date: 20151229
  Transmission Date: 20160305
  Serious: Yes (Hospitalization)
  Sender: FDA-Public Use
  Company Number: US-ACTELION-A-US2014-103892

PATIENT
  Age: 53 Year
  Sex: Female

DRUGS (2)
  1. SILDENAFIL. [Concomitant]
     Active Substance: SILDENAFIL
  2. VELETRI [Suspect]
     Active Substance: EPOPROSTENOL
     Indication: PULMONARY HYPERTENSION
     Dosage: 24 NG/KG, PER MIN
     Route: 042
     Dates: start: 20140605

REACTIONS (10)
  - Decreased appetite [Unknown]
  - Blood culture positive [Recovered/Resolved]
  - Pain in jaw [Recovering/Resolving]
  - Central venous catheter removal [Recovered/Resolved]
  - Catheter site erythema [Unknown]
  - Central venous catheterisation [Recovered/Resolved]
  - Diarrhoea [Recovering/Resolving]
  - Weight decreased [Unknown]
  - Catheter site pruritus [Unknown]
  - Sepsis [Recovered/Resolved]
